FAERS Safety Report 4893459-7 (Version None)
Quarter: 2006Q1

REPORT INFORMATION
  Report Type: 
  Country: None (occurrence: None)
  Receive Date: 20060127
  Receipt Date: 20060117
  Transmission Date: 20060701
  Serious: Yes (Other)
  Sender: FDA-Public Use
  Company Number: US-JNJFOC-20040707672

PATIENT
  Sex: Male
  Weight: 90.72 kg

DRUGS (6)
  1. DURAGESIC-100 [Suspect]
     Route: 062
  2. DURAGESIC-100 [Suspect]
     Route: 062
  3. DURAGESIC-100 [Suspect]
     Route: 062
  4. PERCOCET [Concomitant]
  5. PERCOCET [Concomitant]
  6. DRAMAMINE [Concomitant]

REACTIONS (14)
  - ASTHENIA [None]
  - CARDIOMEGALY [None]
  - CHEST PAIN [None]
  - DIZZINESS [None]
  - DRUG WITHDRAWAL SYNDROME [None]
  - DRY MOUTH [None]
  - DYSPNOEA [None]
  - FEELING JITTERY [None]
  - HEADACHE [None]
  - HYPERSENSITIVITY [None]
  - NAUSEA [None]
  - PARAESTHESIA [None]
  - POLYTRAUMATISM [None]
  - TINNITUS [None]
